FAERS Safety Report 9285611 (Version 1)
Quarter: 2013Q2

REPORT INFORMATION
  Report Type: Report from Study
  Country: JP (occurrence: JP)
  Receive Date: 20130513
  Receipt Date: 20130513
  Transmission Date: 20140414
  Serious: Yes (Life-Threatening, Hospitalization)
  Sender: FDA-Public Use
  Company Number: JP-JNJFOC-20130506024

PATIENT
  Age: 77 Year
  Sex: Female

DRUGS (3)
  1. REMINYL [Suspect]
     Indication: DEMENTIA ALZHEIMER^S TYPE
     Route: 048
     Dates: start: 20120413
  2. INSULIN GLARGINE [Suspect]
     Indication: DIABETES MELLITUS
     Dosage: 8 IU
     Route: 058
  3. ENALAPRIL MALEATE [Suspect]
     Indication: HYPERTENSION
     Route: 048

REACTIONS (1)
  - Lacunar infarction [Recovered/Resolved with Sequelae]
